FAERS Safety Report 10196569 (Version 1)
Quarter: 2014Q2

REPORT INFORMATION
  Report Type: Spontaneous
  Country: US (occurrence: US)
  Receive Date: 20140527
  Receipt Date: 20140527
  Transmission Date: 20141212
  Serious: No
  Sender: FDA-Public Use
  Company Number: US-009507513-1405USA011285

PATIENT
  Age: 20 Year
  Sex: Female

DRUGS (1)
  1. NUVARING [Suspect]
     Indication: CONTRACEPTION
     Dosage: STRENGTH: 0.015/0.12
     Route: 067

REACTIONS (2)
  - Unintended pregnancy [Unknown]
  - Incorrect product storage [Unknown]
